FAERS Safety Report 4346773-8 (Version None)
Quarter: 2004Q1

REPORT INFORMATION
  Report Type: 
  Country: None (occurrence: None)
  Receive Date: 20040329
  Receipt Date: 20040123
  Transmission Date: 20041129
  Serious: No
  Sender: FDA-Public Use
  Company Number: USA040157425

PATIENT
  Age: 14 Year
  Sex: Male
  Weight: 55 kg

DRUGS (1)
  1. STRATTERA [Suspect]
     Indication: ATTENTION DEFICIT/HYPERACTIVITY DISORDER
     Dosage: 60 MG/IN THE MORNING

REACTIONS (4)
  - ABDOMINAL PAIN UPPER [None]
  - DYSPEPSIA [None]
  - INCREASED APPETITE [None]
  - VOMITING [None]
